FAERS Safety Report 12246315 (Version 1)
Quarter: 2016Q2

REPORT INFORMATION
  Report Type: Spontaneous
  Country: BR (occurrence: BR)
  Receive Date: 20160407
  Receipt Date: 20160407
  Transmission Date: 20160815
  Serious: Yes (Other)
  Sender: FDA-Public Use
  Company Number: BR-ASTRAZENECA-2016SE36161

PATIENT
  Age: 791 Month
  Sex: Female
  Weight: 66 kg

DRUGS (6)
  1. ASA [Concomitant]
     Active Substance: ASPIRIN
     Indication: ANGIOPLASTY
     Route: 048
     Dates: start: 20160322
  2. INSULIN APIDRA [Concomitant]
     Indication: DIABETES MELLITUS
     Dosage: TWO TIMES A DAY
     Route: 058
  3. BRILINTA [Suspect]
     Active Substance: TICAGRELOR
     Indication: ANGIOPLASTY
     Dosage: TWO TIMES A DAY
     Route: 048
     Dates: start: 20160322, end: 20160331
  4. INSULIN [Concomitant]
     Active Substance: INSULIN NOS
     Indication: DIABETES MELLITUS
     Dosage: DAILY
     Route: 058
  5. TORLOS [Concomitant]
     Indication: HYPERTENSION
     Dosage: DAILY
     Route: 048
     Dates: start: 2005
  6. JANUVIA [Concomitant]
     Active Substance: SITAGLIPTIN PHOSPHATE
     Indication: DIABETES MELLITUS

REACTIONS (6)
  - Blood glucose increased [Recovered/Resolved]
  - Dizziness [Not Recovered/Not Resolved]
  - Nausea [Not Recovered/Not Resolved]
  - Dyspnoea [Recovering/Resolving]
  - Headache [Not Recovered/Not Resolved]
  - Paraesthesia [Not Recovered/Not Resolved]

NARRATIVE: CASE EVENT DATE: 201603
